FAERS Safety Report 4880590-5 (Version None)
Quarter: 2005Q4

REPORT INFORMATION
  Report Type: 
  Country: None (occurrence: None)
  Receive Date: 20051223
  Receipt Date: 20051116
  Transmission Date: 20060501
  Serious: No
  Sender: FDA-Public Use
  Company Number: 05P-163-0317602-00

PATIENT
  Age: 42 Year
  Sex: Female
  Weight: 68.0396 kg

DRUGS (11)
  1. HUMIRA [Suspect]
     Indication: RHEUMATOID ARTHRITIS
     Dosage: 40  MG, 1 IN 2 WK, SUBCUTANEOUS
     Route: 058
     Dates: start: 20050701
  2. METHOTREXATE [Concomitant]
  3. PREDNISONE [Concomitant]
  4. ATENOLOL [Concomitant]
  5. ATORVASTATIN CALCIUM [Concomitant]
  6. FOLIC ACID [Concomitant]
  7. ECOTRIN EC [Concomitant]
  8. ASCORBIC ACID [Concomitant]
  9. MULTIVITAMIN [Concomitant]
  10. CALCIUM GLUCONATE [Concomitant]
  11. HYDROXYCHLOROQUINE PHOSPHATE [Concomitant]

REACTIONS (1)
  - PHOTOPSIA [None]
